FAERS Safety Report 6539897-8 (Version None)
Quarter: 2010Q1

REPORT INFORMATION
  Report Type: 
  Country: None (occurrence: None)
  Receive Date: 20100115
  Receipt Date: 20100104
  Transmission Date: 20100710
  Serious: Yes (Other)
  Sender: FDA-Public Use
  Company Number: US-JNJFOC-20100104161

PATIENT
  Age: 4 Month
  Sex: Female
  Weight: 5.44 kg

DRUGS (4)
  1. TYLENOL (CAPLET) [Suspect]
     Indication: DIARRHOEA
     Route: 048
  2. TYLENOL (CAPLET) [Suspect]
     Indication: VOMITING
     Route: 048
  3. TYLENOL (CAPLET) [Suspect]
     Indication: PYREXIA
     Route: 048
  4. TYLENOL (CAPLET) [Suspect]
     Indication: EAR INFECTION
     Route: 048

REACTIONS (5)
  - DIARRHOEA [None]
  - PRODUCT LOT NUMBER ISSUE [None]
  - PYREXIA [None]
  - TRANSMISSION OF AN INFECTIOUS AGENT VIA A MEDICINAL PRODUCT [None]
  - VOMITING [None]
